FAERS Safety Report 15917075 (Version 1)
Quarter: 2019Q1

REPORT INFORMATION
  Report Type: Spontaneous
  Country: ES (occurrence: ES)
  Receive Date: 20190205
  Receipt Date: 20190205
  Transmission Date: 20190417
  Serious: Yes (Hospitalization)
  Sender: FDA-Public Use
  Company Number: ES-ACCORD-105473

PATIENT
  Age: 56 Year
  Sex: Female
  Weight: 67 kg

DRUGS (1)
  1. OXALIPLATIN ACCORD [Suspect]
     Active Substance: OXALIPLATIN
     Indication: COLON CANCER
     Dosage: 5 MG / ML 1 VIAL OF 40 ML 130 MG / M2 EVERY 21 DAYS FOLLOWING XELOX SCHEME, SECOND CYCLE
     Route: 042
     Dates: start: 20180417, end: 20180509

REACTIONS (9)
  - Dysphonia [Recovering/Resolving]
  - Asthenia [Recovering/Resolving]
  - Paraesthesia [Recovering/Resolving]
  - Hyperhidrosis [Recovering/Resolving]
  - Dizziness [Recovering/Resolving]
  - Muscle contracture [Recovering/Resolving]
  - Hypertension [Recovering/Resolving]
  - Stridor [Recovering/Resolving]
  - Dysaesthesia [Recovering/Resolving]

NARRATIVE: CASE EVENT DATE: 20180417
